FAERS Safety Report 7080716-1 (Version None)
Quarter: 2010Q4

REPORT INFORMATION
  Report Type: 
  Country: None (occurrence: None)
  Receive Date: 20101022
  Receipt Date: 20101006
  Transmission Date: 20110411
  Serious: Yes (Other)
  Sender: FDA-Public Use
  Company Number: PHHY2010IT66741

PATIENT
  Age: 69 Year
  Sex: Male

DRUGS (4)
  1. VISUDYNE [Suspect]
     Indication: CHOROIDAL NEOVASCULARISATION
  2. ASPIRIN [Concomitant]
  3. LIPID LOWERING AGENTS [Concomitant]
  4. DIURETICS [Concomitant]

REACTIONS (3)
  - RETINAL OEDEMA [None]
  - RETINAL SCAR [None]
  - VISUAL ACUITY REDUCED [None]
